FAERS Safety Report 8803589 (Version 1)
Quarter: 2012Q4

REPORT INFORMATION
  Report Type: 
  Country: US (occurrence: US)
  Receive Date: 20120924
  Receipt Date: 20120924
  Transmission Date: 20130627
  Serious: No
  Sender: FDA-Public Use
  Company Number: US-009507513-1208USA008693

PATIENT
  Age: 26 Year
  Sex: Male

DRUGS (3)
  1. SAPHRIS [Suspect]
     Indication: BIPOLAR DISORDER
     Dosage: 5 mg, bid, rapid dissolve
     Route: 060
  2. LAMICTAL [Concomitant]
  3. CLONOPIN [Concomitant]

REACTIONS (1)
  - Extrapyramidal disorder [Recovered/Resolved]
